FAERS Safety Report 8917238 (Version 3)
Quarter: 2015Q2

REPORT INFORMATION
  Report Type: Report from Study
  Country: JP (occurrence: JP)
  Receive Date: 20121119
  Receipt Date: 20150619
  Transmission Date: 20150821
  Serious: Yes (Death, Other)
  Sender: FDA-Public Use
  Company Number: JP-MYLANLABS-2012S1023360

PATIENT

DRUGS (3)
  1. VANCOMYCIN [Suspect]
     Active Substance: VANCOMYCIN
     Dosage: 1 G, QD
     Route: 041
     Dates: start: 20111203, end: 20111203
  2. VANCOMYCIN [Suspect]
     Active Substance: VANCOMYCIN
     Indication: MENINGITIS BACTERIAL
     Dosage: 0.6 G, BID
     Route: 041
     Dates: start: 20111203, end: 20111207
  3. CEFTRIAXONE SANDOZ [Concomitant]
     Active Substance: CEFTRIAXONE
     Indication: MENINGITIS BACTERIAL
     Dosage: 4 G,QD
     Route: 041
     Dates: start: 20111203, end: 20111207

REACTIONS (2)
  - Seizure [Not Recovered/Not Resolved]
  - Drug ineffective [Fatal]

NARRATIVE: CASE EVENT DATE: 20111205
